FAERS Safety Report 12168973 (Version 1)
Quarter: 2016Q1

REPORT INFORMATION
  Report Type: Spontaneous
  Country: US (occurrence: US)
  Receive Date: 20160310
  Receipt Date: 20160310
  Transmission Date: 20160526
  Serious: Yes (Other)
  Sender: FDA-Public Use
  Company Number: US-TEVA-641683USA

PATIENT
  Sex: Male

DRUGS (1)
  1. ZECUITY [Suspect]
     Active Substance: SUMATRIPTAN SUCCINATE
     Dosage: USED 8-10 PATCHES OVER THE LAST COUPLE MONTHS
     Route: 062

REACTIONS (6)
  - Application site swelling [Recovering/Resolving]
  - Application site erythema [Recovering/Resolving]
  - Application site dryness [Recovering/Resolving]
  - Sunburn [Recovering/Resolving]
  - Application site pruritus [Recovering/Resolving]
  - Application site discolouration [Not Recovered/Not Resolved]
